FAERS Safety Report 5404943-1 (Version None)
Quarter: 2007Q3

REPORT INFORMATION
  Report Type: 
  Country: None (occurrence: None)
  Receive Date: 20070803
  Receipt Date: 20070726
  Transmission Date: 20080115
  Serious: Yes (Other)
  Sender: FDA-Public Use
  Company Number: GR-AMGEN-UK234047

PATIENT
  Age: 48 Year
  Sex: Female
  Weight: 65 kg

DRUGS (4)
  1. KINERET [Suspect]
     Indication: CONNECTIVE TISSUE DISORDER
     Route: 058
     Dates: start: 20070520, end: 20070602
  2. METHOTREXATE [Concomitant]
  3. FILICINE [Concomitant]
  4. MEDROL [Concomitant]

REACTIONS (1)
  - INJECTION SITE ERYTHEMA [None]
